FAERS Safety Report 10581076 (Version 1)
Quarter: 2014Q4

REPORT INFORMATION
  Report Type: Spontaneous
  Country: US (occurrence: None)
  Receive Date: 20141112
  Receipt Date: 20141112
  Transmission Date: 20150529
  Serious: No
  Sender: FDA-Public Use
  Company Number: None

PATIENT
  Age: 65 Year
  Sex: Female
  Weight: 68.04 kg

DRUGS (11)
  1. REBIF REBIDOSE [Suspect]
     Active Substance: INTERFERON BETA-1A
     Indication: MULTIPLE SCLEROSIS
     Route: 042
     Dates: end: 201409
  2. SENTURY SEINOR CENTRUM SILVER [Concomitant]
  3. CENTRUM SILVER [Concomitant]
     Active Substance: VITAMINS
  4. STOOL SOFTENERS [Concomitant]
     Active Substance: UNSPECIFIED INGREDIENT
  5. METFORMIN [Concomitant]
     Active Substance: METFORMIN HYDROCHLORIDE
  6. LOW DOSE BABY ASPIRIN [Concomitant]
  7. LEVOTHYROXIN [Concomitant]
     Active Substance: LEVOTHYROXINE
  8. OXYBUTYNIN [Concomitant]
     Active Substance: OXYBUTYNIN
  9. TRAMADOL [Concomitant]
     Active Substance: TRAMADOL
  10. LORATADINE. [Concomitant]
     Active Substance: LORATADINE
  11. LIPITOR [Concomitant]
     Active Substance: ATORVASTATIN CALCIUM

REACTIONS (3)
  - Suicidal ideation [None]
  - Intentional overdose [None]
  - Depressed mood [None]

NARRATIVE: CASE EVENT DATE: 20140820
